FAERS Safety Report 8191120-7 (Version None)
Quarter: 2012Q1

REPORT INFORMATION
  Report Type: 
  Country: None (occurrence: None)
  Receive Date: 20120307
  Receipt Date: 20120302
  Transmission Date: 20120608
  Serious: Yes (Other)
  Sender: FDA-Public Use
  Company Number: FR-GLAXOSMITHKLINE-B0781409A

PATIENT
  Sex: Male

DRUGS (3)
  1. TRILEPTAL [Concomitant]
     Indication: EPILEPSY
     Route: 048
  2. URBANYL [Concomitant]
     Dosage: 10MG TWICE PER DAY
     Route: 048
  3. LAMICTAL [Suspect]
     Indication: PARTIAL SEIZURES
     Route: 048
     Dates: start: 20110301

REACTIONS (4)
  - IRRITABILITY [None]
  - APATHY [None]
  - DEPRESSED MOOD [None]
  - AGGRESSION [None]
